FAERS Safety Report 10691089 (Version 5)
Quarter: 2015Q4

REPORT INFORMATION
  Report Type: Report from Study
  Country: US (occurrence: US)
  Receive Date: 20150105
  Receipt Date: 20151006
  Transmission Date: 20160304
  Serious: Yes (Hospitalization)
  Sender: FDA-Public Use
  Company Number: US-SA-2013SA104198

PATIENT
  Age: 35 Year
  Sex: Female

DRUGS (3)
  1. AUBAGIO [Suspect]
     Active Substance: TERIFLUNOMIDE
     Indication: MULTIPLE SCLEROSIS
     Dosage: TAKEN FROM: 3-4 MONTHS AGO
     Route: 048
     Dates: start: 20130626, end: 20131025
  2. NORCO [Concomitant]
     Active Substance: ACETAMINOPHEN\HYDROCODONE BITARTRATE
  3. AUBAGIO [Suspect]
     Active Substance: TERIFLUNOMIDE
     Indication: MULTIPLE SCLEROSIS
     Route: 048
     Dates: start: 20141103

REACTIONS (4)
  - Drug dose omission [Unknown]
  - Exposure during pregnancy [Unknown]
  - Knee operation [Unknown]
  - Nausea [Unknown]

NARRATIVE: CASE EVENT DATE: 20141226
